FAERS Safety Report 5265635-5 (Version None)
Quarter: 2007Q1

REPORT INFORMATION
  Report Type: 
  Country: None (occurrence: None)
  Receive Date: 20061213
  Receipt Date: 20030714
  Transmission Date: 20070707
  Serious: Yes (Other)
  Sender: FDA-Public Use
  Company Number: 2003UW07584

PATIENT
  Age: 55 Year
  Sex: Male
  Weight: 78.0187 kg

DRUGS (6)
  1. IRESSA [Suspect]
     Indication: LUNG NEOPLASM MALIGNANT
     Dosage: 250 MG DAILY PO
     Route: 048
     Dates: start: 20030421, end: 20030613
  2. PHENYTOIN [Suspect]
     Dates: start: 20030301
  3. DEXAMETHASONE [Concomitant]
  4. RANITIDINE [Concomitant]
  5. GEMZAR [Concomitant]
  6. TAXOTERE [Concomitant]

REACTIONS (4)
  - ANOREXIA [None]
  - DRUG INTERACTION [None]
  - DYSPEPSIA [None]
  - WEIGHT DECREASED [None]
